FAERS Safety Report 7930133-4 (Version None)
Quarter: 2011Q4

REPORT INFORMATION
  Report Type: 
  Country: None (occurrence: None)
  Receive Date: 20111117
  Receipt Date: 20111102
  Transmission Date: 20120403
  Serious: Yes (Hospitalization)
  Sender: FDA-Public Use
  Company Number: 2011HGS-002731

PATIENT
  Age: 49 Year
  Sex: Female
  Weight: 101.1521 kg

DRUGS (1)
  1. BENLYSTA [Suspect]
     Indication: SYSTEMIC LUPUS ERYTHEMATOSUS
     Dosage: 1 IN 14 D, INTRAVENOUS DRIP
     Route: 042
     Dates: start: 20110915, end: 20110915

REACTIONS (5)
  - THALAMIC INFARCTION [None]
  - BALANCE DISORDER [None]
  - SPEECH DISORDER [None]
  - DIPLOPIA [None]
  - HEMIPARESIS [None]
